FAERS Safety Report 12443400 (Version 1)
Quarter: 2016Q2

REPORT INFORMATION
  Report Type: Spontaneous
  Country: CH (occurrence: CH)
  Receive Date: 20160607
  Receipt Date: 20160607
  Transmission Date: 20160815
  Serious: Yes (Hospitalization, Other)
  Sender: FDA-Public Use
  Company Number: CH-PFIZER INC-2016284181

PATIENT
  Age: 62 Year
  Sex: Female

DRUGS (15)
  1. DIFLUCAN [Suspect]
     Active Substance: FLUCONAZOLE
     Dosage: 200 MG, 1 TABLET
     Route: 048
     Dates: start: 20160503
  2. NOVALGIN [Suspect]
     Active Substance: METAMIZOLE SODIUM
     Indication: PAIN
     Dosage: 20 DROPS, 3X/DAY (0.5 G/ML/DROPS)
     Route: 048
     Dates: start: 20160323, end: 20160504
  3. LACRYCON /02221601/ [Concomitant]
     Dates: start: 20160323
  4. ESOMEP /01479303/ [Suspect]
     Active Substance: ESOMEPRAZOLE SODIUM
     Dosage: 40 MG, 1X/DAY
     Route: 048
     Dates: start: 20160323
  5. TEGRETOL [Suspect]
     Active Substance: CARBAMAZEPINE
     Indication: STATUS EPILEPTICUS
     Dosage: 400 MG, 3X/DAY
     Route: 048
     Dates: start: 20160323
  6. DUPHALAC [Concomitant]
     Active Substance: LACTULOSE
     Dosage: 40X/DAY
     Route: 048
     Dates: start: 20160330
  7. KALIUM HAUSMANN EFFERVETTES [Concomitant]
     Dosage: UNK UNK, 1X/DAY
     Dates: start: 20160425
  8. TEMESTA [Suspect]
     Active Substance: LORAZEPAM
     Dosage: 5 MG (2 X 2.5 MG), 4X/DAY
     Route: 048
     Dates: start: 20160323
  9. APHENYLBARBIT /00023201/ [Suspect]
     Active Substance: PHENOBARBITAL
     Indication: STATUS EPILEPTICUS
     Dosage: 100 MG, 2X/DAY
     Route: 048
     Dates: start: 20160323
  10. PHENYTOIN-GEROT [Suspect]
     Active Substance: PHENYTOIN
     Indication: STATUS EPILEPTICUS
     Dosage: 100 MG, 4X/DAY
     Route: 048
     Dates: start: 20160323
  11. FRAGMIN [Concomitant]
     Active Substance: DALTEPARIN SODIUM
     Dates: start: 20160420
  12. CLYSSIE [Concomitant]
     Dates: start: 20160411
  13. ALDACTONE [Suspect]
     Active Substance: SPIRONOLACTONE
     Dosage: 25 MG, 1X/DAY
     Route: 048
     Dates: start: 20160323
  14. SUPRADYN VITAL 50+ [Concomitant]
     Dosage: UNK, 1X/DAY
     Route: 048
     Dates: start: 20160329
  15. MAGNESIOCARD [Concomitant]
     Active Substance: MAGNESIUM ASPARTATE HYDROCHLORIDE
     Dates: start: 20160425

REACTIONS (4)
  - Leukopenia [Unknown]
  - Neutropenia [Unknown]
  - Constipation [None]
  - Pyrexia [Unknown]

NARRATIVE: CASE EVENT DATE: 20160504
